FAERS Safety Report 17392969 (Version 1)
Quarter: 2020Q1

REPORT INFORMATION
  Report Type: Spontaneous
  Country: US (occurrence: US)
  Receive Date: 20200208
  Receipt Date: 20200208
  Transmission Date: 20200409
  Serious: Yes (Other)
  Sender: FDA-Public Use
  Company Number: US-009507513-2002USA002442

PATIENT
  Sex: Female

DRUGS (1)
  1. KEYTRUDA [Suspect]
     Active Substance: PEMBROLIZUMAB
     Indication: SOFT TISSUE SARCOMA
     Dosage: 2ND ROUND

REACTIONS (6)
  - Hyperthyroidism [Unknown]
  - Type 1 diabetes mellitus [Unknown]
  - Visual impairment [Unknown]
  - Tachycardia [Unknown]
  - Pancreatic toxicity [Unknown]
  - Product use in unapproved indication [Unknown]
